FAERS Safety Report 12774123 (Version 5)
Quarter: 2016Q4

REPORT INFORMATION
  Report Type: Spontaneous
  Country: US (occurrence: US)
  Receive Date: 20160923
  Receipt Date: 20161230
  Transmission Date: 20170207
  Serious: No
  Sender: FDA-Public Use
  Company Number: US-009507513-1609USA006840

PATIENT
  Age: 29 Year
  Sex: Female
  Weight: 126.53 kg

DRUGS (1)
  1. NEXPLANON [Suspect]
     Active Substance: ETONOGESTREL
     Indication: CONTRACEPTION
     Dosage: 1 ROD PER 3 YEARS (Q3Y), IN RIGHT ARM
     Route: 058
     Dates: start: 20130910, end: 20160912

REACTIONS (8)
  - Device difficult to use [Not Recovered/Not Resolved]
  - Incorrect drug administration duration [Unknown]
  - Device breakage [Not Recovered/Not Resolved]
  - Complication associated with device [Not Recovered/Not Resolved]
  - Migration of implanted drug [Unknown]
  - Device difficult to use [Recovered/Resolved]
  - Device deployment issue [Unknown]
  - No adverse event [Unknown]

NARRATIVE: CASE EVENT DATE: 20130910
